FAERS Safety Report 10765907 (Version 1)
Quarter: 2015Q1

REPORT INFORMATION
  Report Type: Spontaneous
  Country: US (occurrence: None)
  Receive Date: 20150204
  Receipt Date: 20150204
  Transmission Date: 20150721
  Serious: Yes (Hospitalization)
  Sender: FDA-Public Use
  Company Number: None

PATIENT
  Age: 78 Year
  Sex: Male
  Weight: 66.2 kg

DRUGS (17)
  1. ALBUTEROL. [Concomitant]
     Active Substance: ALBUTEROL
  2. FERROUS SULFATE [Concomitant]
     Active Substance: FERROUS SULFATE\FERROUS SULFATE, DRIED
  3. ASPIRIN. [Suspect]
     Active Substance: ASPIRIN
     Indication: CARDIAC PACEMAKER INSERTION
     Dosage: CHRONIC
     Route: 048
  4. WARFARIN [Suspect]
     Active Substance: WARFARIN
     Indication: ATRIAL FIBRILLATION
     Dosage: TUES/FRI  CHRONIC
     Route: 048
  5. XALATAN [Concomitant]
     Active Substance: LATANOPROST
  6. CYTOMEL [Concomitant]
     Active Substance: LIOTHYRONINE SODIUM
  7. OMEPRAZOLE. [Concomitant]
     Active Substance: OMEPRAZOLE
  8. SPIRIVA [Concomitant]
     Active Substance: TIOTROPIUM BROMIDE MONOHYDRATE
  9. SYNTHROID [Concomitant]
     Active Substance: LEVOTHYROXINE SODIUM
  10. VITAMIN B12 [Concomitant]
     Active Substance: CYANOCOBALAMIN
  11. CARDURA?? [Concomitant]
  12. ADVAIR ??? [Concomitant]
  13. CASODEX [Concomitant]
     Active Substance: BICALUTAMIDE
  14. ALDACTONE [Concomitant]
     Active Substance: SPIRONOLACTONE
  15. ZETIA [Concomitant]
     Active Substance: EZETIMIBE
  16. METFORMIN [Concomitant]
     Active Substance: METFORMIN HYDROCHLORIDE
  17. DILTIAZEM [Concomitant]
     Active Substance: DILTIAZEM

REACTIONS (4)
  - Gastrointestinal haemorrhage [None]
  - Large intestine polyp [None]
  - Diverticulum [None]
  - Gastritis [None]

NARRATIVE: CASE EVENT DATE: 20140626
